FAERS Safety Report 7156650-5 (Version None)
Quarter: 2010Q4

REPORT INFORMATION
  Report Type: 
  Country: None (occurrence: None)
  Receive Date: 20101214
  Receipt Date: 20101025
  Transmission Date: 20110411
  Serious: No
  Sender: FDA-Public Use
  Company Number: US-ASTRAZENECA-2005UW12036

PATIENT
  Age: 77 Year
  Sex: Female
  Weight: 76.7 kg

DRUGS (9)
  1. CRESTOR [Suspect]
     Indication: BLOOD CHOLESTEROL INCREASED
     Route: 048
  2. CRESTOR [Suspect]
     Route: 048
  3. TOPROL-XL [Concomitant]
  4. PLAVIX [Concomitant]
  5. NORVASC [Concomitant]
  6. COZAAR [Concomitant]
  7. ISOSORBIDE DINITRATE [Concomitant]
  8. TENORMIN [Concomitant]
  9. WATER PILL [Concomitant]

REACTIONS (2)
  - INCORRECT DOSE ADMINISTERED [None]
  - INCREASED TENDENCY TO BRUISE [None]
